FAERS Safety Report 12505023 (Version 1)
Quarter: 2016Q2

REPORT INFORMATION
  Report Type: Spontaneous
  Country: GB (occurrence: GB)
  Receive Date: 20160628
  Receipt Date: 20160628
  Transmission Date: 20160815
  Serious: Yes (Other)
  Sender: FDA-Public Use
  Company Number: GB-TEVA-670382ACC

PATIENT
  Age: 53 Year
  Sex: Female

DRUGS (4)
  1. APREPITANT. [Suspect]
     Active Substance: APREPITANT
     Route: 048
  2. CARBOPLATIN. [Suspect]
     Active Substance: CARBOPLATIN
     Dosage: 174 ML, CYCLICAL, SECON CYCLE.
  3. AVASTIN [Suspect]
     Active Substance: BEVACIZUMAB
  4. APREPITANT. [Suspect]
     Active Substance: APREPITANT
     Route: 048

REACTIONS (4)
  - Hypertensive crisis [Recovered/Resolved]
  - Chest discomfort [Recovered/Resolved]
  - Oropharyngeal discomfort [Recovered/Resolved]
  - Malaise [Recovered/Resolved]

NARRATIVE: CASE EVENT DATE: 20160412
